FAERS Safety Report 4365687-0 (Version None)
Quarter: 2004Q2

REPORT INFORMATION
  Report Type: 
  Country: None (occurrence: None)
  Receive Date: 20040520
  Receipt Date: 20040505
  Transmission Date: 20050107
  Serious: Yes (Hospitalization)
  Sender: FDA-Public Use
  Company Number: 206493

PATIENT
  Age: 60 Year
  Sex: Female
  Weight: 77.7 kg

DRUGS (9)
  1. HERCEPTIN (TRASTUZUMAB) PWDR + SOLVENT, INFUSION SOLN, 450 MG [Suspect]
     Dosage: SEE IMAGE
     Route: 042
     Dates: start: 20031201, end: 20031201
  2. HERCEPTIN (TRASTUZUMAB) PWDR + SOLVENT, INFUSION SOLN, 450 MG [Suspect]
     Dosage: SEE IMAGE
     Route: 042
     Dates: start: 20031222, end: 20040406
  3. AMLODIPINE (AMLODIPINE BESILATE) [Concomitant]
  4. BECLOMETASON INHAL. AER. (BECLOMETHASONE DIPROPIONATE) [Concomitant]
  5. COMBIVENT INHALER (ALBUTEROL SULFATE, ALBUTEROL, IPRATROPIUM BROMIDE) [Concomitant]
  6. DIHYDROCODEINE (DIHYDROCODEINE BITARTRATE) [Concomitant]
  7. AMITRIPTYLINE HCL [Concomitant]
  8. BENDROFLUAZIDE (BENDROFLUMETHIAZIDE) [Concomitant]
  9. ASPIRIN [Concomitant]

REACTIONS (5)
  - CHRONIC OBSTRUCTIVE AIRWAYS DISEASE EXACERBATED [None]
  - MOUTH ULCERATION [None]
  - NEUTROPHIL COUNT INCREASED [None]
  - ORAL CANDIDIASIS [None]
  - PYREXIA [None]
